FAERS Safety Report 25111164 (Version 1)
Quarter: 2025Q1

REPORT INFORMATION
  Report Type: Spontaneous
  Country: GB (occurrence: GB)
  Receive Date: 20250324
  Receipt Date: 20250324
  Transmission Date: 20250408
  Serious: Yes (Other)
  Sender: TEVA
  Company Number: GB-MHRA-TPP8422031C10520040YC1741887443197

PATIENT
  Age: 63 Year
  Sex: Male
  Weight: 86 kg

DRUGS (15)
  1. OFLOXACIN [Suspect]
     Active Substance: OFLOXACIN
     Indication: Ill-defined disorder
     Dosage: TAKE ONE TABLET TWICE DAILY FOR 14 DAYS, TO TRE..., 2 DOSAGE FORMS DAILY
     Route: 065
     Dates: start: 20250311
  2. POTASSIUM BICARBONATE\SODIUM ALGINATE [Concomitant]
     Active Substance: POTASSIUM BICARBONATE\SODIUM ALGINATE
     Indication: Ill-defined disorder
     Dates: start: 20250107
  3. SIMPLA [Concomitant]
     Indication: Ill-defined disorder
     Dates: start: 20250221
  4. NITROFURANTOIN [Concomitant]
     Active Substance: NITROFURANTOIN
     Indication: Ill-defined disorder
     Dosage: TAKE ONE CAPSULE TWICE DAILY, 2 DOSAGE FORMS DAILY, DURATION: 8 DAYS
     Dates: start: 20250110, end: 20250117
  5. LANSOPRAZOLE [Concomitant]
     Active Substance: LANSOPRAZOLE
     Indication: Ill-defined disorder
     Dosage: TAKE ONE DAILY WHILST TAKING IBUPROFEN, DURATION: 29 DAYS
     Dates: start: 20250207, end: 20250307
  6. ZOPICLONE [Concomitant]
     Active Substance: ZOPICLONE
     Indication: Ill-defined disorder
     Dosage: TAKE ONE AT NIGHT WHEN REQUIRED, 1 DOSAGE FORMS DAILY
     Dates: start: 20250311
  7. MOVICOL [Concomitant]
     Active Substance: POLYETHYLENE GLYCOL 3350\POTASSIUM CHLORIDE\SODIUM BICARBONATE\SODIUM CHLORIDE
     Indication: Ill-defined disorder
     Dosage: TAKE ONE SACHET IN WATER TWICE DAILY, 2  DOSAGE FORMS DAILY, DURATION: 2 DAYS
     Dates: start: 20250114, end: 20250115
  8. ACETAMINOPHEN [Concomitant]
     Active Substance: ACETAMINOPHEN
     Indication: Ill-defined disorder
     Dates: start: 20250107
  9. MORPHINE SULFATE [Concomitant]
     Active Substance: MORPHINE SULFATE
     Indication: Ill-defined disorder
     Dates: start: 20250110, end: 20250207
  10. VARENICLINE [Concomitant]
     Active Substance: VARENICLINE
     Indication: Ill-defined disorder
     Dates: start: 20250102, end: 20250130
  11. TRELEGY ELLIPTA [Concomitant]
     Active Substance: FLUTICASONE FUROATE\UMECLIDINIUM BROMIDE\VILANTEROL TRIFENATATE
     Indication: Ill-defined disorder
     Dosage: INHALE 1 DOSE DAILY, 1 DOSAGE FORMS DAILY
     Route: 055
     Dates: start: 20241121
  12. LERCANIDIPINE HYDROCHLORIDE [Concomitant]
     Active Substance: LERCANIDIPINE HYDROCHLORIDE
     Indication: Ill-defined disorder
     Dosage: TAKE ONE DAILY
     Dates: start: 20240827
  13. COTRIMOXAZOLE [Concomitant]
     Active Substance: SULFAMETHOXAZOLE\TRIMETHOPRIM
     Indication: Ill-defined disorder
     Dosage: TAKE TWO TABLETS TWICE DAILY, 4 DOSAGE FORMS DAILY
     Dates: start: 20250313
  14. SENNA [Concomitant]
     Active Substance: SENNOSIDES
     Indication: Ill-defined disorder
     Dates: start: 20250114, end: 20250213
  15. IBUPROFEN [Concomitant]
     Active Substance: IBUPROFEN
     Indication: Ill-defined disorder
     Dates: start: 20250207, end: 20250307

REACTIONS (1)
  - Depressed mood [Recovered/Resolved]
